FAERS Safety Report 13116890 (Version 1)
Quarter: 2017Q1

REPORT INFORMATION
  Report Type: Spontaneous
  Country: US (occurrence: US)
  Receive Date: 20170116
  Receipt Date: 20170116
  Transmission Date: 20170428
  Serious: No
  Sender: FDA-Public Use
  Company Number: US-PFIZER INC-2017016614

PATIENT
  Age: 67 Year
  Sex: Male
  Weight: 61 kg

DRUGS (2)
  1. ADVIL [Suspect]
     Active Substance: IBUPROFEN
     Indication: HEADACHE
     Dosage: 400 MG, 1X/DAY (2 TABLETS ONCE A DAY)
     Route: 048
     Dates: start: 20170104, end: 20170111
  2. ADVIL [Suspect]
     Active Substance: IBUPROFEN
     Dosage: 200 MG, 1X/DAY
     Dates: start: 20170112, end: 20170112

REACTIONS (1)
  - Dyspepsia [Not Recovered/Not Resolved]

NARRATIVE: CASE EVENT DATE: 20170104
